FAERS Safety Report 18970401 (Version 2)
Quarter: 2021Q2

REPORT INFORMATION
  Report Type: Spontaneous
  Country: HR (occurrence: HR)
  Receive Date: 20210305
  Receipt Date: 20210613
  Transmission Date: 20210717
  Serious: Yes (Hospitalization)
  Sender: FDA-Public Use
  Company Number: HR-JNJFOC-20210245262

PATIENT
  Age: 8 Decade
  Sex: Female

DRUGS (1)
  1. STELARA [Suspect]
     Active Substance: USTEKINUMAB
     Indication: CROHN^S DISEASE
     Route: 058
     Dates: start: 202003

REACTIONS (3)
  - Ileal perforation [Unknown]
  - Urinary tract infection [Unknown]
  - Fistula [Unknown]

NARRATIVE: CASE EVENT DATE: 202006
